FAERS Safety Report 14932277 (Version 1)
Quarter: 2018Q2

REPORT INFORMATION
  Report Type: Spontaneous
  Country: FR (occurrence: FR)
  Receive Date: 20180524
  Receipt Date: 20180524
  Transmission Date: 20180711
  Serious: Yes (Other)
  Sender: FDA-Public Use
  Company Number: FR-MERCK KGAA-2048382

PATIENT
  Age: 62 Year
  Sex: Female
  Weight: 63 kg

DRUGS (1)
  1. NOVOTHYROX [Suspect]
     Active Substance: LEVOTHYROXINE SODIUM
     Indication: POST PROCEDURAL HYPOTHYROIDISM
     Route: 048
     Dates: start: 201705

REACTIONS (32)
  - Disturbance in attention [Not Recovered/Not Resolved]
  - Feeling abnormal [None]
  - Tearfulness [None]
  - Loss of libido [None]
  - C-reactive protein increased [None]
  - Somnolence [None]
  - Crying [Not Recovered/Not Resolved]
  - Sleep disorder [None]
  - Headache [None]
  - Hot flush [None]
  - Pain in extremity [Not Recovered/Not Resolved]
  - Decreased interest [None]
  - Morose [None]
  - Decreased activity [None]
  - Depressed mood [None]
  - Diarrhoea [Not Recovered/Not Resolved]
  - Angioedema [Not Recovered/Not Resolved]
  - General physical health deterioration [Not Recovered/Not Resolved]
  - Fatigue [Not Recovered/Not Resolved]
  - Limb discomfort [Not Recovered/Not Resolved]
  - Self esteem decreased [None]
  - Agitation [None]
  - Muscle spasms [None]
  - Emotional disorder [Not Recovered/Not Resolved]
  - Malaise [None]
  - Social avoidant behaviour [None]
  - Hyperhidrosis [Not Recovered/Not Resolved]
  - Impaired work ability [None]
  - Protein total decreased [None]
  - Migraine [Not Recovered/Not Resolved]
  - Insomnia [None]
  - Body temperature increased [None]

NARRATIVE: CASE EVENT DATE: 201705
